FAERS Safety Report 16638611 (Version 1)
Quarter: 2019Q3

REPORT INFORMATION
  Report Type: Spontaneous
  Country: NL (occurrence: NL)
  Receive Date: 20190726
  Receipt Date: 20190726
  Transmission Date: 20191004
  Serious: Yes (Other)
  Sender: FDA-Public Use
  Company Number: PHHY2019NL171359

PATIENT
  Age: 57 Year
  Sex: Female

DRUGS (8)
  1. FUCIDIN C [Concomitant]
     Indication: PRODUCT USED FOR UNKNOWN INDICATION
     Dosage: 1 DF, QD (20MG/G ON INGUINAL REGION)
     Route: 065
     Dates: start: 20180502
  2. TRACYDAL [Interacting]
     Active Substance: TRANYLCYPROMINE SULFATE
     Dosage: 50 MG, QD (30 MG IN THE MORNING AND 20 MG AROUND NOON)
     Route: 065
     Dates: start: 20180604
  3. OXAZEPAM. [Suspect]
     Active Substance: OXAZEPAM
     Indication: PRODUCT USED FOR UNKNOWN INDICATION
     Dosage: 10 MG, QD IF NEEDED
     Route: 065
  4. ATENOLOL. [Interacting]
     Active Substance: ATENOLOL
     Indication: PRODUCT USED FOR UNKNOWN INDICATION
     Dosage: 25 MG, QD
     Route: 065
     Dates: start: 20170331
  5. TRACYDAL [Interacting]
     Active Substance: TRANYLCYPROMINE SULFATE
     Indication: DEPRESSIVE SYMPTOM
     Dosage: 20 MG, QD
     Route: 065
     Dates: start: 20180507
  6. TRACYDAL [Interacting]
     Active Substance: TRANYLCYPROMINE SULFATE
     Dosage: 40 MG, QD
     Route: 065
     Dates: start: 20180607
  7. TRACYDAL [Interacting]
     Active Substance: TRANYLCYPROMINE SULFATE
     Dosage: 30 MG, BID
     Route: 048
     Dates: start: 20180528
  8. TRACYDAL [Interacting]
     Active Substance: TRANYLCYPROMINE SULFATE
     Dosage: 20 MG, TID
     Route: 065
     Dates: start: 20180701

REACTIONS (7)
  - Heart rate decreased [Recovered/Resolved]
  - Headache [Recovered/Resolved]
  - Malaise [Unknown]
  - Potentiating drug interaction [Unknown]
  - Hypertensive crisis [Recovered/Resolved]
  - Blood pressure increased [Recovered/Resolved]
  - Nausea [Recovered/Resolved]

NARRATIVE: CASE EVENT DATE: 20180602
